FAERS Safety Report 14848810 (Version 1)
Quarter: 2018Q2

REPORT INFORMATION
  Report Type: Spontaneous
  Country: US (occurrence: US)
  Receive Date: 20180504
  Receipt Date: 20180504
  Transmission Date: 20180711
  Serious: No
  Sender: FDA-Public Use
  Company Number: US-BAYER-2018-081054

PATIENT
  Sex: Female

DRUGS (1)
  1. MIRALAX [Suspect]
     Active Substance: POLYETHYLENE GLYCOL 3350
     Indication: GASTROINTESTINAL DISORDER
     Dosage: 17 G IN 4 TO 8 OZ OF WATER DOSE
     Route: 048
     Dates: start: 201804

REACTIONS (5)
  - Feeling abnormal [Unknown]
  - Dysphagia [Unknown]
  - Dry mouth [Unknown]
  - Dizziness [Unknown]
  - Dry throat [Unknown]

NARRATIVE: CASE EVENT DATE: 20180425
